FAERS Safety Report 17567110 (Version 2)
Quarter: 2020Q3

REPORT INFORMATION
  Report Type: Report from Study
  Country: BR (occurrence: BR)
  Receive Date: 20200320
  Receipt Date: 20200804
  Transmission Date: 20201102
  Serious: Yes (Hospitalization)
  Sender: FDA-Public Use
  Company Number: BR-JNJFOC-20200318904

PATIENT
  Age: 45 Year
  Sex: Female
  Weight: 66.5 kg

DRUGS (2)
  1. ESKETAMINE [Suspect]
     Active Substance: ESKETAMINE
     Indication: DEPRESSION
     Dates: start: 20171226
  2. VENLAFAXINE [Concomitant]
     Active Substance: VENLAFAXINE HYDROCHLORIDE
     Indication: MAJOR DEPRESSION
     Route: 048
     Dates: start: 20171226

REACTIONS (1)
  - Female sterilisation [Recovered/Resolved]

NARRATIVE: CASE EVENT DATE: 20200305
